FAERS Safety Report 16317892 (Version 1)
Quarter: 2019Q2

REPORT INFORMATION
  Report Type: Spontaneous
  Country: US (occurrence: US)
  Receive Date: 20190516
  Receipt Date: 20190516
  Transmission Date: 20190711
  Serious: No
  Sender: FDA-Public Use
  Company Number: US-ASTRAZENECA-2019SE70500

PATIENT
  Age: 667 Month
  Sex: Female
  Weight: 79.4 kg

DRUGS (2)
  1. QUETIAPINE. [Suspect]
     Active Substance: QUETIAPINE
     Indication: BIPOLAR DISORDER
     Route: 048
     Dates: start: 2014
  2. LITHIUM. [Concomitant]
     Active Substance: LITHIUM

REACTIONS (6)
  - Hepatic enzyme increased [Unknown]
  - Therapy cessation [Unknown]
  - Jaw disorder [Unknown]
  - Gingival pain [Unknown]
  - Insomnia [Unknown]
  - Blood glucose increased [Recovered/Resolved]

NARRATIVE: CASE EVENT DATE: 201902
